FAERS Safety Report 5483379-1 (Version None)
Quarter: 2007Q4

REPORT INFORMATION
  Report Type: 
  Country: None (occurrence: None)
  Receive Date: 20071009
  Receipt Date: 20071009
  Transmission Date: 20080405
  Serious: Yes (Life-Threatening, Hospitalization, Other)
  Sender: FDA-Public Use
  Company Number: None

PATIENT
  Age: 21 Year
  Sex: Female
  Weight: 81.6475 kg

DRUGS (4)
  1. AMPICILLIN [Suspect]
     Indication: BETA HAEMOLYTIC STREPTOCOCCAL INFECTION
     Dosage: IV
     Dates: start: 20070728
  2. AMPICILLIN [Suspect]
     Indication: PROPHYLAXIS
     Dosage: IV
     Dates: start: 20070728
  3. AMPICILLIN [Suspect]
     Indication: BETA HAEMOLYTIC STREPTOCOCCAL INFECTION
     Dosage: IV
     Route: 042
     Dates: start: 20070728
  4. AMPICILLIN [Suspect]
     Indication: PROPHYLAXIS
     Dosage: IV
     Route: 042
     Dates: start: 20070728

REACTIONS (5)
  - DRUG EXPOSURE DURING PREGNANCY [None]
  - HAEMOGLOBIN ABNORMAL [None]
  - LABOUR COMPLICATION [None]
  - POSTPARTUM HAEMORRHAGE [None]
  - UTERINE CONTRACTIONS ABNORMAL [None]
